FAERS Safety Report 10173329 (Version 1)
Quarter: 2014Q2

REPORT INFORMATION
  Report Type: Spontaneous
  Country: US (occurrence: US)
  Receive Date: 20140515
  Receipt Date: 20140515
  Transmission Date: 20141212
  Serious: Yes (Other)
  Sender: FDA-Public Use
  Company Number: US-BAXTER-2014BAX023177

PATIENT
  Age: 53 Year
  Sex: Male

DRUGS (2)
  1. NEXTERONE_AMIODARONE, HYDROCHLORIDE 1.80 MG/ML_SOLUTION FOR INFUSION_B [Suspect]
     Indication: VENTRICULAR TACHYCARDIA
     Route: 042
  2. LIDOCAINE HYDROCHLORIDE AND 5% DEXTROSE INJECTION, USP [Suspect]
     Indication: VENTRICULAR TACHYCARDIA
     Route: 042

REACTIONS (1)
  - Drug ineffective [Not Recovered/Not Resolved]
